FAERS Safety Report 5102069-8 (Version None)
Quarter: 2006Q3

REPORT INFORMATION
  Report Type: 
  Country: None (occurrence: None)
  Receive Date: 20060907
  Receipt Date: 20060831
  Transmission Date: 20061208
  Serious: Yes (Other)
  Sender: FDA-Public Use
  Company Number: 2006105372

PATIENT
  Sex: Male

DRUGS (1)
  1. LISTERINE (MENTHOL, METHYL SALICYLATE, EUCALYPTOL, THYMOL) [Suspect]
     Indication: ALCOHOLISM
     Dosage: 5 GALLONS OVER THE LAST 2 WEEKS, ORAL
     Route: 048
     Dates: start: 20060801

REACTIONS (1)
  - INCORRECT DOSE ADMINISTERED [None]
